FAERS Safety Report 6997523-8 (Version None)
Quarter: 2010Q3

REPORT INFORMATION
  Report Type: 
  Country: None (occurrence: None)
  Receive Date: 20100918
  Receipt Date: 20091103
  Transmission Date: 20110219
  Serious: No
  Sender: FDA-Public Use
  Company Number: US-WYE-H12016909

PATIENT
  Sex: Female
  Weight: 69.46 kg

DRUGS (4)
  1. PRISTIQ [Suspect]
     Indication: DEPRESSION
     Route: 048
     Dates: start: 20090901, end: 20091101
  2. ZOCOR [Concomitant]
  3. PERCOCET [Concomitant]
  4. THYROID [Concomitant]

REACTIONS (5)
  - BALANCE DISORDER [None]
  - CLUMSINESS [None]
  - GAIT DISTURBANCE [None]
  - MUSCULOSKELETAL STIFFNESS [None]
  - MYALGIA [None]
